FAERS Safety Report 15344290 (Version 1)
Quarter: 2018Q4

REPORT INFORMATION
  Report Type: Spontaneous
  Country: NL (occurrence: NL)
  Receive Date: 20180903
  Receipt Date: 20180903
  Transmission Date: 20190204
  Serious: Yes (Other)
  Sender: FDA-Public Use
  Company Number: NL-TEVA-2018-NL-950904

PATIENT
  Age: 70 Year
  Sex: Male

DRUGS (5)
  1. ACETYLSALICYLZUUR 80MG [Concomitant]
     Dosage: 80 MILLIGRAM DAILY; 1.1T
  2. PANTOPRAZOL 20MG [Concomitant]
     Dosage: 20 MILLIGRAM DAILY; 1.1T
  3. NAPROXEN 500MG [Concomitant]
     Active Substance: NAPROXEN
     Dosage: ZO NODIG 2.1T
  4. ATORVASTATINE 10MG [Concomitant]
     Active Substance: ATORVASTATIN
     Dosage: 10 MILLIGRAM DAILY; 1.1T
  5. EZETIMIB TABLET, 10 MG (MILLIGRAM) [Suspect]
     Active Substance: EZETIMIBE
     Indication: HYPERCHOLESTEROLAEMIA
     Dosage: 10 MILLIGRAM DAILY; ONCE A DAY 1 TABLET
     Dates: start: 20131120

REACTIONS (3)
  - Headache [Unknown]
  - Therapeutic response unexpected [Unknown]
  - Somnolence [Unknown]

NARRATIVE: CASE EVENT DATE: 20180524
